FAERS Safety Report 6641538-6 (Version None)
Quarter: 2010Q1

REPORT INFORMATION
  Report Type: 
  Country: None (occurrence: None)
  Receive Date: 20100317
  Receipt Date: 20100317
  Transmission Date: 20100710
  Serious: Yes (Other)
  Sender: FDA-Public Use
  Company Number: None

PATIENT
  Age: 72 Year
  Sex: Female
  Weight: 54.4 kg

DRUGS (10)
  1. INSULIN, GLARGINE [Suspect]
     Indication: TYPE 1 DIABETES MELLITUS
     Dosage: 6 UNITS QAM SQ; 28 UNITS QPM SQ
     Route: 058
     Dates: start: 20100113
  2. URSODIOL [Concomitant]
  3. ALLOPURINOL [Concomitant]
  4. ASPIRIN [Concomitant]
  5. CARVEDILOL [Concomitant]
  6. PROPOXPHENE/APAP [Concomitant]
  7. ATORVASTATIN CALCIUM [Concomitant]
  8. PAROXETINE HCL [Concomitant]
  9. PHENOBARB [Concomitant]
  10. PANTOPRAZOLE [Concomitant]

REACTIONS (3)
  - BLOOD GLUCOSE INCREASED [None]
  - HYPOGLYCAEMIA [None]
  - SKIN ULCER [None]
